FAERS Safety Report 22967378 (Version 2)
Quarter: 2023Q4

REPORT INFORMATION
  Report Type: Spontaneous
  Country: US (occurrence: US)
  Receive Date: 20230921
  Receipt Date: 20231229
  Transmission Date: 20240109
  Serious: No
  Sender: FDA-Public Use
  Company Number: US-PFIZER INC-PV202300104366

PATIENT
  Age: 70 Year
  Sex: Female
  Weight: 58.957 kg

DRUGS (1)
  1. IBRANCE [Suspect]
     Active Substance: PALBOCICLIB
     Indication: Breast cancer female
     Dosage: TAKE 1 TABLET (100 MG) BY MOUTH DAILY FOR 21 DAYS. TAKE ON DAYS 1 TO 21 FOLLOWED BY 7 DAYS OFF
     Route: 048
     Dates: start: 20230602

REACTIONS (2)
  - Illness [Recovered/Resolved]
  - Premenstrual syndrome [Unknown]
